FAERS Safety Report 7902949-1 (Version None)
Quarter: 2011Q4

REPORT INFORMATION
  Report Type: 
  Country: None (occurrence: None)
  Receive Date: 20111103
  Receipt Date: 20111025
  Transmission Date: 20120403
  Serious: Yes (Other)
  Sender: FDA-Public Use
  Company Number: B0760097A

PATIENT
  Age: 8 Year
  Sex: Female

DRUGS (2)
  1. ALBUTEROL SULFATE [Suspect]
     Indication: ASTHMA
     Dosage: 8 DROP(S) / THREE TIMES PER DAY / INHAL
     Route: 055
  2. BECLOMETHASONE DIPROPIONATE [Suspect]
     Indication: ASTHMA
     Dosage: TWICE PER DAY

REACTIONS (2)
  - CYSTITIS HAEMORRHAGIC [None]
  - CONJUNCTIVITIS [None]
